FAERS Safety Report 7627904-0 (Version None)
Quarter: 2011Q3

REPORT INFORMATION
  Report Type: 
  Country: None (occurrence: None)
  Receive Date: 20110721
  Receipt Date: 20110708
  Transmission Date: 20111222
  Serious: Yes (Other)
  Sender: FDA-Public Use
  Company Number: US-AMGEN-USASP2011034870

PATIENT
  Age: 56 Year
  Sex: Female

DRUGS (1)
  1. ENBREL [Suspect]
     Indication: RHEUMATOID ARTHRITIS
     Dosage: 50 MG, QWK
     Dates: start: 20101229

REACTIONS (7)
  - HEADACHE [None]
  - VISION BLURRED [None]
  - VISUAL FIELD DEFECT [None]
  - DIZZINESS [None]
  - GASTRITIS [None]
  - VERTIGO [None]
  - SINUSITIS [None]
